FAERS Safety Report 7851957-8 (Version None)
Quarter: 2011Q4

REPORT INFORMATION
  Report Type: 
  Country: None (occurrence: None)
  Receive Date: 20111026
  Receipt Date: 20111013
  Transmission Date: 20120403
  Serious: Yes (Other)
  Sender: FDA-Public Use
  Company Number: US-ELI_LILLY_AND_COMPANY-US201110003507

PATIENT
  Age: 71 Year
  Sex: Female

DRUGS (5)
  1. MICARDIS [Concomitant]
  2. SYNTHROID [Concomitant]
  3. CYMBALTA [Suspect]
     Dosage: 30 MG, QD
     Dates: start: 20070101
  4. CELEBREX [Concomitant]
  5. LIOTHYRONINE SODIUM [Concomitant]

REACTIONS (1)
  - BLADDER CANCER [None]
